FAERS Safety Report 6230777-4 (Version None)
Quarter: 2009Q2

REPORT INFORMATION
  Report Type: 
  Country: None (occurrence: None)
  Receive Date: 20090616
  Receipt Date: 20090604
  Transmission Date: 20091009
  Serious: Yes (Hospitalization)
  Sender: FDA-Public Use
  Company Number: JP-PFIZER INC-2009223155

PATIENT
  Age: 65 Year

DRUGS (6)
  1. SELARA [Suspect]
     Indication: CARDIAC FAILURE
     Dosage: UNK
     Route: 048
     Dates: start: 20090501
  2. NU LOTAN [Concomitant]
     Dosage: UNK
     Route: 048
  3. ARTIST [Concomitant]
     Dosage: UNK
     Route: 048
  4. LASIX [Concomitant]
     Dosage: UNK
     Route: 048
  5. WARFARIN [Concomitant]
     Dosage: UNK
     Route: 048
  6. ZYLORIC ^FAES^ [Concomitant]
     Dosage: UNK
     Route: 048

REACTIONS (2)
  - BREAST PAIN [None]
  - UNEVALUABLE EVENT [None]
